FAERS Safety Report 4308497-2 (Version None)
Quarter: 2004Q1

REPORT INFORMATION
  Report Type: 
  Country: None (occurrence: None)
  Receive Date: 20040301
  Receipt Date: 20030616
  Transmission Date: 20041129
  Serious: Yes (Hospitalization, Other)
  Sender: FDA-Public Use
  Company Number: JP-BRISTOL-MYERS SQUIBB COMPANY-12302568

PATIENT
  Age: 31 Year
  Sex: Male

DRUGS (11)
  1. ZERIT [Suspect]
     Indication: ACQUIRED IMMUNODEFICIENCY SYNDROME
     Route: 048
     Dates: start: 20020909, end: 20020924
  2. STOCRIN CAPS [Suspect]
     Indication: ACQUIRED IMMUNODEFICIENCY SYNDROME
     Route: 048
     Dates: start: 20020909, end: 20020924
  3. RETROVIR [Suspect]
     Indication: ACQUIRED IMMUNODEFICIENCY SYNDROME
     Route: 048
     Dates: start: 20021004
  4. EPIVIR [Suspect]
     Indication: ACQUIRED IMMUNODEFICIENCY SYNDROME
     Route: 048
     Dates: start: 20020909
  5. NORVIR [Suspect]
     Indication: ACQUIRED IMMUNODEFICIENCY SYNDROME
     Route: 048
     Dates: start: 20020924, end: 20020927
  6. VIRACEPT [Suspect]
     Indication: ACQUIRED IMMUNODEFICIENCY SYNDROME
     Dosage: TAKEN FROM 10/04/02 TO 11/11/02 AND ONGOING FROM 12/06/02
     Route: 048
     Dates: start: 20021004
  7. PROZEI [Suspect]
     Indication: ACQUIRED IMMUNODEFICIENCY SYNDROME
     Route: 048
     Dates: start: 20021111, end: 20021113
  8. FORTOVASE [Suspect]
     Indication: ACQUIRED IMMUNODEFICIENCY SYNDROME
     Route: 048
     Dates: start: 20020924, end: 20020927
  9. DIFLUCAN [Concomitant]
     Route: 048
     Dates: start: 20020705, end: 20030206
  10. BAKTAR [Concomitant]
     Route: 048
     Dates: start: 20020705, end: 20020724
  11. BENAMBAX [Concomitant]
     Dates: start: 20020801, end: 20020920

REACTIONS (11)
  - C-REACTIVE PROTEIN INCREASED [None]
  - DIZZINESS [None]
  - HEPATIC FUNCTION ABNORMAL [None]
  - HYPOAESTHESIA [None]
  - INSOMNIA [None]
  - PLATELET COUNT DECREASED [None]
  - PROTEINURIA [None]
  - PYREXIA [None]
  - RASH [None]
  - STOMATITIS [None]
  - WHITE BLOOD CELL COUNT INCREASED [None]
